FAERS Safety Report 9964077 (Version 2)
Quarter: 2014Q1

REPORT INFORMATION
  Report Type: Spontaneous
  Country: SE (occurrence: SE)
  Receive Date: 20140305
  Receipt Date: 20140305
  Transmission Date: 20141002
  Serious: Yes (Other)
  Sender: FDA-Public Use
  Company Number: SE-RB-061863-13

PATIENT
  Age: 66 Year
  Sex: Male
  Weight: 92 kg

DRUGS (1)
  1. TEMGESIC TABLET [Suspect]
     Indication: SCIATICA
     Route: 065
     Dates: start: 20131130, end: 20131203

REACTIONS (5)
  - Hallucination [Recovered/Resolved]
  - Pruritus [Recovered/Resolved]
  - Sleep disorder [Recovered/Resolved]
  - Urine flow decreased [Recovered/Resolved]
  - Somnolence [Recovered/Resolved]
